FAERS Safety Report 17871180 (Version 1)
Quarter: 2020Q2

REPORT INFORMATION
  Report Type: Spontaneous
  Country: CA (occurrence: CA)
  Receive Date: 20200608
  Receipt Date: 20200608
  Transmission Date: 20200714
  Serious: Yes (Other)
  Sender: FDA-Public Use
  Company Number: CA-PFIZER INC-2020220098

PATIENT
  Sex: Male

DRUGS (5)
  1. ARAVA [Suspect]
     Active Substance: LEFLUNOMIDE
     Indication: PSORIATIC ARTHROPATHY
     Dosage: 10 MG 1 EVERY 1 DAYS
  2. ARAVA [Suspect]
     Active Substance: LEFLUNOMIDE
     Indication: PSORIATIC ARTHROPATHY
     Dosage: 20 MG 1 EVERY 1 DAYS
     Route: 065
  3. FOLIC ACID. [Concomitant]
     Active Substance: FOLIC ACID
  4. METHOTREXATE SODIUM. [Suspect]
     Active Substance: METHOTREXATE SODIUM
     Indication: PSORIATIC ARTHROPATHY
     Dosage: UNK
     Route: 065
  5. DEPO-MEDROL [Concomitant]
     Active Substance: METHYLPREDNISOLONE ACETATE
     Dosage: 60 MG, SUSPENSION INTRAARTICULAR
     Route: 030

REACTIONS (13)
  - Malaise [Recovered/Resolved]
  - Musculoskeletal stiffness [Recovered/Resolved]
  - Feeling abnormal [Recovered/Resolved]
  - Joint swelling [Recovered/Resolved]
  - Fatigue [Recovered/Resolved]
  - Dermatitis psoriasiform [Recovered/Resolved]
  - Sleep disorder [Recovered/Resolved]
  - Syncope [Recovered/Resolved]
  - Drug intolerance [Recovered/Resolved]
  - Condition aggravated [Recovered/Resolved]
  - Disturbance in attention [Recovered/Resolved]
  - Hypotension [Recovered/Resolved]
  - Arthralgia [Recovered/Resolved]
